FAERS Safety Report 12411328 (Version 1)
Quarter: 2016Q2

REPORT INFORMATION
  Report Type: Spontaneous
  Country: JP (occurrence: JP)
  Receive Date: 20160527
  Receipt Date: 20160527
  Transmission Date: 20160815
  Serious: Yes (Other)
  Sender: FDA-Public Use
  Company Number: JP-APOTEX-2016AP008688

PATIENT
  Sex: Female

DRUGS (2)
  1. PAXIL CR [Suspect]
     Active Substance: PAROXETINE HYDROCHLORIDE
     Indication: OBSESSIVE-COMPULSIVE DISORDER
     Dosage: 50 MG, UNK
     Route: 048
     Dates: end: 201507
  2. CONSTAN [Concomitant]
     Active Substance: ALPRAZOLAM
     Indication: PRODUCT USED FOR UNKNOWN INDICATION
     Dosage: UNK UNK, QD
     Route: 065

REACTIONS (9)
  - Internal haemorrhage [Unknown]
  - Face injury [Unknown]
  - Swelling face [Unknown]
  - Therapy cessation [Unknown]
  - Obsessive-compulsive disorder [Unknown]
  - Condition aggravated [Unknown]
  - Tooth fracture [Unknown]
  - Off label use [Unknown]
  - Fall [Unknown]
